FAERS Safety Report 7388531-6 (Version None)
Quarter: 2011Q2

REPORT INFORMATION
  Report Type: 
  Country: None (occurrence: None)
  Receive Date: 20110401
  Receipt Date: 20110328
  Transmission Date: 20111010
  Serious: Yes (Other)
  Sender: FDA-Public Use
  Company Number: US-PFIZER INC-2011069620

PATIENT
  Sex: Female
  Weight: 61.224 kg

DRUGS (6)
  1. PRISTIQ [Suspect]
     Indication: POST-TRAUMATIC STRESS DISORDER
     Dosage: UNK
     Route: 048
     Dates: start: 20110301, end: 20110328
  2. XANAX [Concomitant]
     Indication: POST-TRAUMATIC STRESS DISORDER
     Dosage: 0.5 MG, UNK
     Route: 048
  3. XANAX [Concomitant]
     Indication: PANIC ATTACK
  4. TRAZODONE [Concomitant]
     Indication: PANIC ATTACK
  5. NEBIVOLOL [Concomitant]
     Indication: BLOOD PRESSURE ABNORMAL
     Dosage: 5 MG, 2X/DAY
     Route: 048
     Dates: end: 20110301
  6. TRAZODONE [Concomitant]
     Indication: POST-TRAUMATIC STRESS DISORDER
     Dosage: 300 MG, 1X/DAY
     Route: 048

REACTIONS (6)
  - ASTHENIA [None]
  - BLOOD PRESSURE DECREASED [None]
  - MALAISE [None]
  - NERVOUSNESS [None]
  - LOSS OF CONSCIOUSNESS [None]
  - DIZZINESS [None]
